FAERS Safety Report 5028684-8 (Version None)
Quarter: 2006Q2

REPORT INFORMATION
  Report Type: 
  Country: None (occurrence: None)
  Receive Date: 20060619
  Receipt Date: 20060614
  Transmission Date: 20061013
  Serious: Yes (Other)
  Sender: FDA-Public Use
  Company Number: PT-JNJFOC-20060502110

PATIENT
  Sex: Female

DRUGS (1)
  1. PEVARYL [Suspect]
     Indication: FUNGAL INFECTION
     Route: 065

REACTIONS (2)
  - APPLICATION SITE BURN [None]
  - INTENTIONAL DRUG MISUSE [None]
